FAERS Safety Report 5001979-X (Version None)
Quarter: 2006Q2

REPORT INFORMATION
  Report Type: 
  Country: None (occurrence: None)
  Receive Date: 20060515
  Receipt Date: 20051005
  Transmission Date: 20061013
  Serious: Yes (Other)
  Sender: FDA-Public Use
  Company Number: PR-MERCK-0510USA05121

PATIENT
  Sex: Male
  Weight: 80 kg

DRUGS (3)
  1. VIOXX [Suspect]
     Indication: CERVICOBRACHIAL SYNDROME
     Route: 048
     Dates: start: 20010703, end: 20041025
  2. VIOXX [Suspect]
     Indication: PAIN
     Route: 048
     Dates: start: 20010703, end: 20041025
  3. TYLENOL W/ CODEINE NO. 3 [Concomitant]
     Route: 065

REACTIONS (8)
  - ANGINA PECTORIS [None]
  - ARRHYTHMIA [None]
  - CARDIOVASCULAR DISORDER [None]
  - CEREBROVASCULAR ACCIDENT [None]
  - EMBOLISM [None]
  - HEMIPARESIS [None]
  - HYPERTENSION [None]
  - POLYTRAUMATISM [None]
